FAERS Safety Report 7839591 (Version 2)
Quarter: 2012Q4

REPORT INFORMATION
  Report Type: 
  Country: US (occurrence: US)
  Receive Date: 20110303
  Receipt Date: 20120911
  Transmission Date: 20130627
  Serious: Yes (Other)
  Sender: FDA-Public Use
  Company Number: US-ASTRAZENECA-2011SE10116

PATIENT
  Age: 58 Month
  Sex: Female
  Weight: 91.6 kg

DRUGS (4)
  1. SEROQUEL [Suspect]
     Indication: BIPOLAR DISORDER
     Route: 048
     Dates: start: 2009
  2. ARIMIDEX [Suspect]
     Route: 048
  3. RISPERDAL [Concomitant]
  4. DEPAKOTE [Concomitant]

REACTIONS (3)
  - Breast cancer [Unknown]
  - Hypertension [Unknown]
  - Blood pressure fluctuation [Unknown]
